FAERS Safety Report 12375339 (Version 1)
Quarter: 2016Q2

REPORT INFORMATION
  Report Type: Spontaneous
  Country: US (occurrence: None)
  Receive Date: 20160516
  Receipt Date: 20160516
  Transmission Date: 20160815
  Serious: Yes (Other)
  Sender: FDA-Public Use
  Company Number: None

PATIENT
  Age: 11 Year
  Sex: Male
  Weight: 75.2 kg

DRUGS (1)
  1. LAMOTRIGINE 0.5MG [Suspect]
     Active Substance: LAMOTRIGINE

REACTIONS (2)
  - Product substitution issue [None]
  - Skin reaction [None]

NARRATIVE: CASE EVENT DATE: 20150724
